FAERS Safety Report 4694234-9 (Version None)
Quarter: 2005Q2

REPORT INFORMATION
  Report Type: 
  Country: None (occurrence: None)
  Receive Date: 20050617
  Receipt Date: 20050617
  Transmission Date: 20051028
  Serious: No
  Sender: FDA-Public Use
  Company Number: None

PATIENT
  Sex: Female
  Weight: 27.2158 kg

DRUGS (3)
  1. ADVAIR DISKUS 100/50 [Suspect]
     Indication: ASTHMA
     Dosage: 1 PUFF   TWICE DAILY
     Dates: start: 20050512, end: 20050517
  2. NASONEX [Concomitant]
  3. ZYRTEC [Concomitant]

REACTIONS (3)
  - COUGH [None]
  - PHARYNGEAL OEDEMA [None]
  - WHEEZING [None]
